FAERS Safety Report 6409274-9 (Version None)
Quarter: 2009Q4

REPORT INFORMATION
  Report Type: 
  Country: None (occurrence: None)
  Receive Date: 20091019
  Receipt Date: 20091019
  Transmission Date: 20100525
  Serious: Yes (Other)
  Sender: FDA-Public Use
  Company Number: None

PATIENT
  Age: 41 Year
  Sex: Female
  Weight: 98.8842 kg

DRUGS (2)
  1. ALLI [Suspect]
     Indication: WEIGHT CONTROL
     Dosage: 1 3 PO
     Route: 048
     Dates: start: 20080215, end: 20080501
  2. ALLI [Suspect]
     Indication: WEIGHT CONTROL
     Dosage: 1 3 PO
     Route: 048
     Dates: start: 20080901, end: 20081030

REACTIONS (8)
  - ANXIETY [None]
  - BODY FAT DISORDER [None]
  - CHOLELITHIASIS [None]
  - LIVER INJURY [None]
  - NEPHROLITHIASIS [None]
  - PANCREATITIS [None]
  - STRESS [None]
  - URINARY TRACT INFECTION [None]
